FAERS Safety Report 5400035-6 (Version None)
Quarter: 2007Q3

REPORT INFORMATION
  Report Type: 
  Country: None (occurrence: None)
  Receive Date: 20070726
  Receipt Date: 20070726
  Transmission Date: 20080115
  Serious: Yes (Hospitalization)
  Sender: FDA-Public Use
  Company Number: None

PATIENT
  Age: 73 Year
  Sex: Female

DRUGS (2)
  1. FENTANYL [Suspect]
     Indication: SEDATION
     Dosage: 200MCG  ONCE  IV
     Route: 042
  2. MIDAZOLAM [Suspect]
     Indication: SEDATION
     Dosage: 7MG  ONCE  IV
     Route: 042

REACTIONS (2)
  - CYANOSIS [None]
  - LOSS OF CONSCIOUSNESS [None]
